FAERS Safety Report 9680982 (Version 1)
Quarter: 2013Q4

REPORT INFORMATION
  Report Type: Spontaneous
  Country: GB (occurrence: GB)
  Receive Date: 20131111
  Receipt Date: 20131111
  Transmission Date: 20140711
  Serious: Yes (Life-Threatening, Other)
  Sender: FDA-Public Use
  Company Number: GB-DRREDDYS-USA/UKI/13/0035498

PATIENT
  Age: 43 Year
  Sex: Female

DRUGS (1)
  1. QUETIAPINE [Suspect]
     Indication: SCHIZOAFFECTIVE DISORDER
     Route: 065

REACTIONS (6)
  - Peripartum cardiomyopathy [Unknown]
  - Cardiac arrest [Unknown]
  - Premature delivery [Unknown]
  - Caesarean section [Unknown]
  - Exposure during pregnancy [Unknown]
  - Abdominal pain [Unknown]
